FAERS Safety Report 9370912 (Version 1)
Quarter: 2013Q2

REPORT INFORMATION
  Report Type: Spontaneous
  Country: TR (occurrence: TR)
  Receive Date: 20130627
  Receipt Date: 20130627
  Transmission Date: 20140414
  Serious: Yes (Other)
  Sender: FDA-Public Use
  Company Number: TR-ABBOTT-13X-161-1110718-00

PATIENT
  Age: 23 Year
  Sex: Male

DRUGS (3)
  1. DEPAKIN CHRONO [Suspect]
     Indication: EPILEPSY
     Dosage: 1600 MILLIGRAM(S);DAILY,EXTENDED RELEASE
     Route: 048
     Dates: start: 2004
  2. TEGRETOL [Concomitant]
     Indication: PRODUCT USED FOR UNKNOWN INDICATION
     Dates: start: 2004
  3. DEPAKIN [Concomitant]
     Indication: PRODUCT USED FOR UNKNOWN INDICATION
     Dates: start: 2004

REACTIONS (4)
  - Medication residue present [Unknown]
  - Convulsion [Unknown]
  - Drug level decreased [Unknown]
  - Weight increased [Unknown]
